FAERS Safety Report 10352876 (Version 2)
Quarter: 2014Q3

REPORT INFORMATION
  Report Type: Spontaneous
  Country: US (occurrence: US)
  Receive Date: 20140730
  Receipt Date: 20140730
  Transmission Date: 20150326
  Serious: Yes (Hospitalization, Other)
  Sender: FDA-Public Use
  Company Number: US-009507513-2010SP012619

PATIENT
  Sex: Female
  Weight: 111.13 kg

DRUGS (1)
  1. NUVARING [Suspect]
     Active Substance: ETHINYL ESTRADIOL\ETONOGESTREL
     Indication: CONTRACEPTION
     Route: 067
     Dates: start: 200712, end: 200802

REACTIONS (13)
  - Tachycardia [Not Recovered/Not Resolved]
  - Thyroid neoplasm [Unknown]
  - Cerebrovascular accident [Unknown]
  - Obsessive-compulsive disorder [Unknown]
  - Stress [Unknown]
  - Depression [Unknown]
  - Weight increased [Unknown]
  - Mental status changes [Recovering/Resolving]
  - Cerebral thrombosis [Recovered/Resolved]
  - Anxiety [Unknown]
  - Ovarian cyst [Unknown]
  - Hypertension [Unknown]
  - Systemic lupus erythematosus [Unknown]

NARRATIVE: CASE EVENT DATE: 200712
